FAERS Safety Report 18957024 (Version 15)
Quarter: 2021Q4

REPORT INFORMATION
  Report Type: Other
  Country: AT (occurrence: None)
  Receive Date: 20210302
  Receipt Date: 20211116
  Transmission Date: 20220303
  Serious: Yes (Hospitalization)
  Sender: FDA-Public Use
  Company Number: AT-ROCHE-2771980

PATIENT
  Age: 55 Year
  Sex: Female
  Weight: 100.9 kg

DRUGS (36)
  1. ATEZOLIZUMAB [Suspect]
     Active Substance: ATEZOLIZUMAB
     Indication: Small cell lung cancer extensive stage
     Dosage: START AND END DATE OF MOST RECENT DOSE OF STUDY DRUG PRIOR TO AE 26/JAN/2021
     Route: 042
     Dates: start: 20210105
  2. CARBOPLATIN [Suspect]
     Active Substance: CARBOPLATIN
     Indication: Small cell lung cancer extensive stage
     Route: 065
     Dates: start: 20210105
  3. ETOPOSIDE [Suspect]
     Active Substance: ETOPOSIDE
     Indication: Small cell lung cancer extensive stage
     Route: 065
     Dates: start: 20210105
  4. LANSOBENE [Concomitant]
     Dates: start: 200509
  5. CARVEDILOL [Concomitant]
     Active Substance: CARVEDILOL
     Dates: start: 200905
  6. AMLODIPINE [Concomitant]
     Active Substance: AMLODIPINE BESYLATE
     Dates: start: 200911
  7. SPIRIVA [Concomitant]
     Active Substance: TIOTROPIUM BROMIDE MONOHYDRATE
     Dates: start: 20201203
  8. JANUMET [Concomitant]
     Active Substance: METFORMIN HYDROCHLORIDE\SITAGLIPTIN PHOSPHATE
     Dates: start: 201706
  9. TEGRETOL [Concomitant]
     Active Substance: CARBAMAZEPINE
     Dates: start: 202011
  10. EDOXABAN TOSYLATE [Concomitant]
     Active Substance: EDOXABAN TOSYLATE
     Dates: start: 202007, end: 20210126
  11. EDOXABAN TOSYLATE [Concomitant]
     Active Substance: EDOXABAN TOSYLATE
     Dates: start: 20210129
  12. GABAPENTIN [Concomitant]
     Active Substance: GABAPENTIN
     Dates: start: 201809
  13. NOVALGIN (AUSTRIA) [Concomitant]
     Dates: start: 202012
  14. ONDANSETRON [Concomitant]
     Active Substance: ONDANSETRON
     Dates: start: 20210126, end: 20210128
  15. ONDANSETRON [Concomitant]
     Active Substance: ONDANSETRON
     Dates: start: 20210129, end: 20210202
  16. ONDANSETRON [Concomitant]
     Active Substance: ONDANSETRON
     Dates: start: 20210224, end: 20210226
  17. ONDANSETRON [Concomitant]
     Active Substance: ONDANSETRON
     Dates: start: 20210227, end: 20210303
  18. ONDANSETRON [Concomitant]
     Active Substance: ONDANSETRON
     Dates: start: 20210317, end: 20210324
  19. ONDANSETRON [Concomitant]
     Active Substance: ONDANSETRON
     Dates: start: 20210320
  20. ONDANSETRON [Concomitant]
     Active Substance: ONDANSETRON
     Dates: start: 20210326
  21. DEXAMETHASONE [Concomitant]
     Active Substance: DEXAMETHASONE
     Dates: start: 20210126, end: 20210128
  22. DEXAMETHASONE [Concomitant]
     Active Substance: DEXAMETHASONE
     Dates: start: 20210224, end: 20210226
  23. DEXAMETHASONE [Concomitant]
     Active Substance: DEXAMETHASONE
     Dates: start: 20210317, end: 20210319
  24. ARANESP [Concomitant]
     Active Substance: DARBEPOETIN ALFA
     Dates: start: 20210215, end: 20210215
  25. ARANESP [Concomitant]
     Active Substance: DARBEPOETIN ALFA
     Dates: start: 20210319, end: 20210319
  26. DEXABENE [Concomitant]
     Indication: Parotitis
     Dates: start: 20210217, end: 20210218
  27. XGEVA [Concomitant]
     Active Substance: DENOSUMAB
     Dates: start: 20210226, end: 20210226
  28. XGEVA [Concomitant]
     Active Substance: DENOSUMAB
     Dates: start: 20210319, end: 20210319
  29. NEULASTA [Concomitant]
     Active Substance: PEGFILGRASTIM
     Dates: start: 20210227, end: 20210227
  30. NEULASTA [Concomitant]
     Active Substance: PEGFILGRASTIM
     Dates: start: 20210320, end: 20210320
  31. POLYETHYLENE GLYCOL 3350\POTASSIUM CHLORIDE\SODIUM BICARBONATE\SODIUM [Concomitant]
     Active Substance: POLYETHYLENE GLYCOL 3350\POTASSIUM CHLORIDE\SODIUM BICARBONATE\SODIUM CHLORIDE
     Dates: start: 20210319
  32. ASCORBIC ACID\CALCIUM PHOSPHATE\CHOLECALCIFEROL\CITRIC ACID MONOHYDRAT [Concomitant]
     Active Substance: ASCORBIC ACID\CALCIUM PHOSPHATE\CHOLECALCIFEROL\CITRIC ACID MONOHYDRATE
     Dates: start: 20210224
  33. PFIZER-BIONTECH COVID-19 VACCINE [Concomitant]
     Active Substance: TOZINAMERAN
     Dosage: BIONTECH/PFIZER
     Dates: start: 20210327, end: 20210327
  34. HYDROMORPHONE HYDROCHLORIDE [Concomitant]
     Active Substance: HYDROMORPHONE HYDROCHLORIDE
     Dosage: RET. 2MG
     Dates: start: 20210317
  35. HYDROMORPHONE HYDROCHLORIDE [Concomitant]
     Active Substance: HYDROMORPHONE HYDROCHLORIDE
     Dosage: 1.3 MG
     Dates: start: 20210319
  36. CHOLECALCIFEROL [Concomitant]
     Active Substance: CHOLECALCIFEROL
     Indication: Prophylaxis
     Dates: start: 20210225

REACTIONS (5)
  - Parotitis [Not Recovered/Not Resolved]
  - Pyrexia [Recovered/Resolved]
  - Platelet count decreased [Recovered/Resolved]
  - Anaemia [Not Recovered/Not Resolved]
  - Chest pain [Not Recovered/Not Resolved]

NARRATIVE: CASE EVENT DATE: 20210213
